FAERS Safety Report 8086350-9 (Version None)
Quarter: 2012Q1

REPORT INFORMATION
  Report Type: 
  Country: None (occurrence: None)
  Receive Date: 20120128
  Receipt Date: 20110509
  Transmission Date: 20120608
  Serious: No
  Sender: FDA-Public Use
  Company Number: US-ABBOTT-11P-163-0724461-00

PATIENT
  Sex: Female

DRUGS (7)
  1. HUMIRA [Suspect]
     Indication: ANKYLOSING SPONDYLITIS
  2. OXYCONTIN [Concomitant]
     Indication: PAIN
  3. ESTROGENIC SUBSTANCE [Concomitant]
     Indication: MENOPAUSE
     Dosage: LOWEST DOSE
  4. HYDROXYZINE [Concomitant]
     Indication: PSORIASIS
  5. HYDROCODONE BITARTRATE [Concomitant]
     Indication: PAIN
  6. HYDROXYZINE [Concomitant]
     Indication: PRURITUS
  7. VERAPAMIL [Concomitant]
     Indication: HYPERTENSION

REACTIONS (9)
  - DIZZINESS [None]
  - PYREXIA [None]
  - VOMITING [None]
  - NAUSEA [None]
  - FATIGUE [None]
  - HEADACHE [None]
  - DIARRHOEA [None]
  - CHILLS [None]
  - JOINT STIFFNESS [None]
